FAERS Safety Report 4824773-9 (Version None)
Quarter: 2005Q4

REPORT INFORMATION
  Report Type: 
  Country: None (occurrence: None)
  Receive Date: 20051108
  Receipt Date: 20051020
  Transmission Date: 20060501
  Serious: No
  Sender: FDA-Public Use
  Company Number: GBS051018839

PATIENT
  Age: 17 Year
  Sex: Female

DRUGS (3)
  1. OLANZAPINE [Suspect]
     Indication: SCHIZOAFFECTIVE DISORDER
     Dosage: 5 MG
     Dates: start: 20050801
  2. VALPROATE SODIUM [Concomitant]
  3. ABILIFY [Concomitant]

REACTIONS (1)
  - NEUTROPENIA [None]
